FAERS Safety Report 15939020 (Version 5)
Quarter: 2019Q3

REPORT INFORMATION
  Report Type: Spontaneous
  Country: US (occurrence: US)
  Receive Date: 20190208
  Receipt Date: 20190927
  Transmission Date: 20191004
  Serious: Yes (Other)
  Sender: FDA-Public Use
  Company Number: US-ASTRAZENECA-2018SF14790

PATIENT
  Sex: Female

DRUGS (47)
  1. PRILOSEC [Suspect]
     Active Substance: OMEPRAZOLE MAGNESIUM
     Indication: GASTROOESOPHAGEAL REFLUX DISEASE
     Route: 048
     Dates: start: 20080107
  2. NASONEX [Concomitant]
     Active Substance: MOMETASONE FUROATE
  3. LISINOPRIL. [Concomitant]
     Active Substance: LISINOPRIL
  4. AMPICILLIN [Concomitant]
     Active Substance: AMPICILLIN
  5. METHOCARBAMOL. [Concomitant]
     Active Substance: METHOCARBAMOL
  6. NEXIUM [Suspect]
     Active Substance: ESOMEPRAZOLE MAGNESIUM
     Indication: GASTROOESOPHAGEAL REFLUX DISEASE
     Route: 048
     Dates: start: 200204, end: 200207
  7. PRILOSEC [Suspect]
     Active Substance: OMEPRAZOLE MAGNESIUM
     Indication: GASTROOESOPHAGEAL REFLUX DISEASE
     Route: 048
     Dates: start: 200204, end: 200207
  8. PRILOSEC OTC [Suspect]
     Active Substance: OMEPRAZOLE MAGNESIUM
     Indication: GASTROOESOPHAGEAL REFLUX DISEASE
     Route: 048
     Dates: start: 200204, end: 200207
  9. DIPHENHYDRAMINE. [Concomitant]
     Active Substance: DIPHENHYDRAMINE
  10. VITAMIN C [Concomitant]
     Active Substance: ASCORBIC ACID
  11. GUAIFENEX [Concomitant]
     Active Substance: GUAIFENESIN\PHENYLEPHRINE\PHENYLPROPANOLAMINE
  12. PROAIR HFA [Concomitant]
     Active Substance: ALBUTEROL SULFATE
  13. VENTOLIN [Concomitant]
     Active Substance: ALBUTEROL SULFATE
  14. LISINOPRIL. [Concomitant]
     Active Substance: LISINOPRIL
  15. FLONASE [Concomitant]
     Active Substance: FLUTICASONE PROPIONATE
  16. NEXIUM [Suspect]
     Active Substance: ESOMEPRAZOLE MAGNESIUM
     Indication: GASTROOESOPHAGEAL REFLUX DISEASE
     Route: 048
     Dates: start: 20020604
  17. GENTAMICIN. [Concomitant]
     Active Substance: GENTAMICIN
  18. ALBUTEROL SULFATE. [Concomitant]
     Active Substance: ALBUTEROL SULFATE
  19. MAGNESIUM OXIDE. [Concomitant]
     Active Substance: MAGNESIUM OXIDE
  20. LYSINE [Concomitant]
     Active Substance: LYSINE
  21. HYDROCODONE [Concomitant]
     Active Substance: HYDROCODONE
  22. LABETALOL [Concomitant]
     Active Substance: LABETALOL\LABETALOL HYDROCHLORIDE
  23. LOSARTAN. [Concomitant]
     Active Substance: LOSARTAN
  24. PRILOSEC [Suspect]
     Active Substance: OMEPRAZOLE MAGNESIUM
     Indication: GASTROOESOPHAGEAL REFLUX DISEASE
     Route: 048
     Dates: start: 19980204, end: 19981004
  25. CEFOTAXIME [Concomitant]
     Active Substance: CEFOTAXIME SODIUM
  26. ZELNORM [Concomitant]
     Active Substance: TEGASEROD MALEATE
  27. ALBUTEROL. [Concomitant]
     Active Substance: ALBUTEROL
  28. PRILOSEC [Suspect]
     Active Substance: OMEPRAZOLE MAGNESIUM
     Indication: GASTROOESOPHAGEAL REFLUX DISEASE
     Dosage: GENERIC
     Route: 065
  29. MULTIVITAMINS [Concomitant]
     Active Substance: VITAMINS
  30. RANITIDINE. [Concomitant]
     Active Substance: RANITIDINE
  31. BENADRYL [Concomitant]
     Active Substance: DIPHENHYDRAMINE HYDROCHLORIDE
  32. LABETALOL [Concomitant]
     Active Substance: LABETALOL\LABETALOL HYDROCHLORIDE
  33. BENZONATATE. [Concomitant]
     Active Substance: BENZONATATE
  34. AZITHROMYCIN ANHYDROUS. [Concomitant]
     Active Substance: AZITHROMYCIN ANHYDROUS
  35. AMITRIPTYLINE [Concomitant]
     Active Substance: AMITRIPTYLINE
  36. NEXIUM [Suspect]
     Active Substance: ESOMEPRAZOLE MAGNESIUM
     Indication: GASTROOESOPHAGEAL REFLUX DISEASE
     Route: 048
     Dates: start: 20020521, end: 20020605
  37. BECONASE AQ [Concomitant]
     Active Substance: BECLOMETHASONE DIPROPIONATE MONOHYDRATE
  38. TRIMOX [Concomitant]
     Active Substance: AMOXICILLIN
  39. CEFUROXIME. [Concomitant]
     Active Substance: CEFUROXIME
  40. AMOXICILLIN. [Concomitant]
     Active Substance: AMOXICILLIN
  41. PRILOSEC OTC [Suspect]
     Active Substance: OMEPRAZOLE MAGNESIUM
     Indication: GASTROOESOPHAGEAL REFLUX DISEASE
     Route: 048
     Dates: start: 20050101, end: 20070101
  42. TOBRAMYCIN. [Concomitant]
     Active Substance: TOBRAMYCIN
  43. VITAMIN D3 [Concomitant]
     Active Substance: CHOLECALCIFEROL
  44. MELATONIN [Concomitant]
     Active Substance: MELATONIN
  45. NIACIN. [Concomitant]
     Active Substance: NIACIN
  46. KETEK [Concomitant]
     Active Substance: TELITHROMYCIN
  47. SINGULAIR [Concomitant]
     Active Substance: MONTELUKAST SODIUM

REACTIONS (2)
  - Renal injury [Unknown]
  - Chronic kidney disease [Not Recovered/Not Resolved]
